FAERS Safety Report 10583757 (Version 2)
Quarter: 2014Q4

REPORT INFORMATION
  Report Type: Spontaneous
  Country: DE (occurrence: None)
  Receive Date: 20141112
  Receipt Date: 20141231
  Transmission Date: 20150529
  Serious: Yes (Other)
  Sender: FDA-Public Use
  Company Number: MIN-00996

PATIENT
  Age: 52 Year
  Sex: Male

DRUGS (1)
  1. MINOCYCLINE 100MG GENERIC [Suspect]
     Active Substance: MINOCYCLINE HYDROCHLORIDE
     Indication: ACNE
     Dosage: CAPSULE
     Route: 048
     Dates: start: 1999, end: 2014

REACTIONS (7)
  - Gastrointestinal disorder [None]
  - Retinal tear [None]
  - Scleral pigmentation [None]
  - Pigmentation disorder [None]
  - Skin hyperpigmentation [None]
  - Tooth disorder [None]
  - Actinic elastosis [None]

NARRATIVE: CASE EVENT DATE: 2011
